FAERS Safety Report 8875036 (Version 5)
Quarter: 2013Q1

REPORT INFORMATION
  Report Type: Spontaneous
  Country: US (occurrence: US)
  Receive Date: 20121029
  Receipt Date: 20130305
  Transmission Date: 20140127
  Serious: Yes (Other)
  Sender: FDA-Public Use
  Company Number: US-PFIZER INC-2012266878

PATIENT
  Age: 59 Year
  Sex: Male

DRUGS (7)
  1. INLYTA [Suspect]
     Indication: METASTATIC RENAL CELL CARCINOMA
     Dosage: 5 MG, 2X/DAY
     Route: 048
     Dates: start: 20120814, end: 20121109
  2. INLYTA [Suspect]
     Indication: RENAL CANCER
     Dosage: 5 MG TWICE DAILY ALTERNATED WITH 5 MG ONCE DAILY
     Route: 048
     Dates: start: 20121119
  3. INLYTA [Suspect]
     Dosage: 5MG BID EVERY OTHER DAY
     Dates: start: 20120814
  4. INLYTA [Suspect]
     Dosage: 5 MG, 2X/DAY
  5. ATENOLOL [Concomitant]
     Dosage: 25 MG, UNK
  6. NORVASC [Concomitant]
     Dosage: 5 MG, UNK
  7. SYNTHROID [Concomitant]
     Dosage: 75 UG, UNK

REACTIONS (9)
  - Diarrhoea [Recovered/Resolved]
  - Flatulence [Unknown]
  - Back pain [Unknown]
  - Musculoskeletal stiffness [Unknown]
  - Weight decreased [Unknown]
  - Dehydration [Recovered/Resolved]
  - Dysphonia [Unknown]
  - Disease progression [Unknown]
  - Metastatic renal cell carcinoma [Unknown]
